FAERS Safety Report 12110222 (Version 4)
Quarter: 2016Q1

REPORT INFORMATION
  Report Type: Spontaneous
  Country: JP (occurrence: JP)
  Receive Date: 20160224
  Receipt Date: 20160318
  Transmission Date: 20160526
  Serious: Yes (Hospitalization, Other)
  Sender: FDA-Public Use
  Company Number: JP-009507513-1602JPN010013

PATIENT
  Age: 53 Year
  Sex: Male
  Weight: 66 kg

DRUGS (2)
  1. REBETOL [Suspect]
     Active Substance: RIBAVIRIN
     Indication: CHRONIC HEPATITIS C
     Dosage: 200 MG-0-0-400 MG
     Route: 048
     Dates: start: 20150915, end: 20151208
  2. SOVALDI [Suspect]
     Active Substance: SOFOSBUVIR
     Indication: CHRONIC HEPATITIS C
     Dosage: 400 MG, DAILY
     Route: 048
     Dates: start: 20150915, end: 20151208

REACTIONS (1)
  - Soft tissue sarcoma [Recovering/Resolving]

NARRATIVE: CASE EVENT DATE: 201510
